FAERS Safety Report 10734656 (Version 3)
Quarter: 2015Q1

REPORT INFORMATION
  Report Type: Spontaneous
  Country: US (occurrence: US)
  Receive Date: 20150123
  Receipt Date: 20150303
  Transmission Date: 20150721
  Serious: No
  Sender: FDA-Public Use
  Company Number: US-PFIZER INC-2015028900

PATIENT
  Age: 64 Year
  Sex: Female
  Weight: 91 kg

DRUGS (7)
  1. LOSARTAN POTASSIUM. [Concomitant]
     Active Substance: LOSARTAN POTASSIUM
     Indication: HYPERTENSION
     Dosage: 50 MG, DAILY
     Route: 048
  2. DULERA [Concomitant]
     Active Substance: FORMOTEROL FUMARATE DIHYDRATE\MOMETASONE FUROATE
     Indication: ASTHMA
     Dosage: 2 DF, 2X/DAY TWO PUFFS IN THE MORNING AND 2 PUFFS IN THE EVENING
  3. ZYVOX [Suspect]
     Active Substance: LINEZOLID
     Indication: STREPTOCOCCAL INFECTION
     Dosage: 600 MG, 2X/DAY FOR TWO WEEKS
     Dates: start: 20150119
  4. LEVOTHYROXINE [Concomitant]
     Active Substance: LEVOTHYROXINE
     Indication: HYPOTHYROIDISM
     Dosage: 25 ?G, 1X/DAY 1 HOURS BEFORE EATING
     Route: 048
  5. PROBIOTICS [Concomitant]
     Active Substance: PROBIOTICS NOS
     Indication: GASTROINTESTINAL DISORDER
     Dosage: 1 DF, 2X/DAY
  6. CIPRO [Suspect]
     Active Substance: CIPROFLOXACIN HYDROCHLORIDE
     Indication: BACTERIAL INFECTION
     Dosage: 500 MG, 2X/DAY
  7. ZYVOX [Suspect]
     Active Substance: LINEZOLID
     Indication: STAPHYLOCOCCAL INFECTION

REACTIONS (13)
  - Diarrhoea [Not Recovered/Not Resolved]
  - Psychomotor hyperactivity [Unknown]
  - Dyspnoea [Unknown]
  - Disorientation [Recovering/Resolving]
  - Nervousness [Unknown]
  - Feeling abnormal [Recovering/Resolving]
  - Feeling jittery [Unknown]
  - Insomnia [Unknown]
  - Disturbance in attention [Recovering/Resolving]
  - Activities of daily living impaired [Recovering/Resolving]
  - Nausea [Recovering/Resolving]
  - Incoherent [Unknown]
  - Palpitations [Recovering/Resolving]

NARRATIVE: CASE EVENT DATE: 20150119
